FAERS Safety Report 6541238-7 (Version None)
Quarter: 2010Q1

REPORT INFORMATION
  Report Type: 
  Country: None (occurrence: None)
  Receive Date: 20100118
  Receipt Date: 20100111
  Transmission Date: 20100710
  Serious: Yes (Hospitalization)
  Sender: FDA-Public Use
  Company Number: US-ELI_LILLY_AND_COMPANY-US201001002120

PATIENT
  Sex: Male

DRUGS (13)
  1. HUMALOG [Suspect]
     Indication: DIABETES MELLITUS
     Route: 058
     Dates: start: 20010101
  2. HUMALOG [Suspect]
     Route: 058
     Dates: start: 20010101
  3. LEXAPRO [Concomitant]
     Dosage: 10 MG, DAILY (1/D)
  4. BABY ASPIRIN [Concomitant]
     Dosage: 81 MG, DAILY (1/D)
  5. COREG [Concomitant]
     Dosage: 25 MG, 2/D
  6. CLONIDINE [Concomitant]
     Dosage: 0.1 MG, 2/D
  7. CAPRE [Concomitant]
     Dosage: 500 MG, DAILY (1/D)
  8. VERAPAMIL [Concomitant]
     Dosage: 360 MG, DAILY (1/D)
  9. NEXIUM [Concomitant]
     Dosage: 40 MG, DAILY (1/D)
  10. REGLAN [Concomitant]
     Dosage: 5 MG, 3/D
  11. REGLAN [Concomitant]
     Dosage: 5 MG, EACH EVENING
  12. RENAL [Concomitant]
     Dosage: UNK, DAILY (1/D)
  13. HYDROCODONE [Concomitant]
     Dosage: 750 MG, AS NEEDED

REACTIONS (1)
  - GASTRIC DISORDER [None]
